FAERS Safety Report 25872468 (Version 1)
Quarter: 2025Q4

REPORT INFORMATION
  Report Type: Spontaneous
  Country: US (occurrence: US)
  Receive Date: 20251002
  Receipt Date: 20251002
  Transmission Date: 20260118
  Serious: No
  Sender: ROCHE
  Company Number: US-ROCHE-10000397038

PATIENT
  Age: 24 Year
  Sex: Female
  Weight: 58.96 kg

DRUGS (16)
  1. XOLAIR [Suspect]
     Active Substance: OMALIZUMAB
     Indication: Asthma
     Route: 058
     Dates: start: 2025
  2. XOLAIR [Suspect]
     Active Substance: OMALIZUMAB
  3. SILVADENE [Concomitant]
     Active Substance: SILVER SULFADIAZINE
     Indication: Thermal burn
     Dosage: AS NEEDED
  4. ZOLMITRIPTAN [Concomitant]
     Active Substance: ZOLMITRIPTAN
     Indication: Migraine
     Dosage: AS NEEDED FOR 24 HOURS
     Route: 045
  5. NURTEC ODT [Concomitant]
     Active Substance: RIMEGEPANT SULFATE
     Indication: Migraine
     Dosage: AS NEEDED
  6. LYRICA [Concomitant]
     Active Substance: PREGABALIN
     Indication: Pain
  7. NEXPLANON [Concomitant]
     Active Substance: ETONOGESTREL
     Indication: Contraception
     Dates: start: 202408
  8. XOPENEX [Concomitant]
     Active Substance: LEVALBUTEROL HYDROCHLORIDE
     Indication: Asthma
     Dosage: AS NEEDED
  9. XOPENEX [Concomitant]
     Active Substance: LEVALBUTEROL HYDROCHLORIDE
     Dosage: SOLUTION 1.5/.5ML AS NEEDED
  10. XOPENEX [Concomitant]
     Active Substance: LEVALBUTEROL HYDROCHLORIDE
     Dosage: SOLUTION 1.5/.5ML AS NEEDED
  11. REGLAN [Concomitant]
     Active Substance: METOCLOPRAMIDE HYDROCHLORIDE
     Indication: Impaired gastric emptying
     Dates: start: 2025
  12. PROTONIX [Concomitant]
     Active Substance: PANTOPRAZOLE SODIUM
     Indication: Impaired gastric emptying
     Dates: start: 2025
  13. PEPCID [Concomitant]
     Active Substance: FAMOTIDINE
     Indication: Impaired gastric emptying
     Dosage: EVERY NIGHT
     Dates: start: 2025
  14. FLOVENT [Concomitant]
     Active Substance: FLUTICASONE PROPIONATE
     Indication: Asthma
     Dosage: AS NEEDED
  15. METOPROLOL [Concomitant]
     Active Substance: METOPROLOL
     Indication: Postural orthostatic tachycardia syndrome
     Dosage: AS NEEDED
     Dates: start: 2025
  16. ZOFRAN [Concomitant]
     Active Substance: ONDANSETRON HYDROCHLORIDE
     Indication: Nausea

REACTIONS (4)
  - Accidental exposure to product [Unknown]
  - Product use complaint [Unknown]
  - Device issue [Unknown]
  - No adverse event [Unknown]

NARRATIVE: CASE EVENT DATE: 20250901
